FAERS Safety Report 7305571-3 (Version None)
Quarter: 2011Q1

REPORT INFORMATION
  Report Type: 
  Country: None (occurrence: None)
  Receive Date: 20110222
  Receipt Date: 20110215
  Transmission Date: 20110831
  Serious: Yes (Other)
  Sender: FDA-Public Use
  Company Number: US-PFIZER INC-2010146044

PATIENT
  Sex: Female

DRUGS (3)
  1. ASACOL [Concomitant]
     Indication: COLITIS
     Dosage: 2400 MG, 2X/DAY
     Route: 048
  2. COLACE [Suspect]
     Indication: CONSTIPATION
     Dosage: UNK
     Dates: start: 20100101
  3. CHANTIX [Suspect]
     Indication: SMOKING CESSATION THERAPY
     Dosage: UNK
     Route: 048
     Dates: start: 20101001, end: 20100101

REACTIONS (7)
  - CONSTIPATION [None]
  - SURGERY [None]
  - MOOD SWINGS [None]
  - ANXIETY [None]
  - DEPRESSION [None]
  - CROHN'S DISEASE [None]
  - COLITIS [None]
